FAERS Safety Report 4299761-4 (Version None)
Quarter: 2004Q1

REPORT INFORMATION
  Report Type: 
  Country: None (occurrence: None)
  Receive Date: 20040126
  Receipt Date: 20031113
  Transmission Date: 20041129
  Serious: No
  Sender: FDA-Public Use
  Company Number: USA031152474

PATIENT
  Age: 68 Year
  Sex: Male

DRUGS (3)
  1. STRATTERA [Suspect]
     Indication: ATTENTION DEFICIT/HYPERACTIVITY DISORDER
     Dosage: 40 MG/IN THE MORNING
     Dates: start: 20031001
  2. LAMICTAL [Concomitant]
  3. VASOTEC [Concomitant]

REACTIONS (5)
  - HYPERHIDROSIS [None]
  - IMPULSIVE BEHAVIOUR [None]
  - MOOD SWINGS [None]
  - MUSCLE RIGIDITY [None]
  - MYALGIA [None]
